FAERS Safety Report 4811741-6 (Version None)
Quarter: 2005Q4

REPORT INFORMATION
  Report Type: 
  Country: None (occurrence: None)
  Receive Date: 20051025
  Receipt Date: 20051011
  Transmission Date: 20060501
  Serious: Yes (Other)
  Sender: FDA-Public Use
  Company Number: US-2005-021237

PATIENT
  Sex: Male

DRUGS (6)
  1. FLUDARA [Suspect]
     Indication: B-CELL LYMPHOMA
  2. RITUXIMAB (RITUXIMAB) [Suspect]
     Indication: B-CELL LYMPHOMA
  3. CYCLOPHOSPHAMIDE [Suspect]
     Indication: B-CELL LYMPHOMA
  4. DOXORUBICIN HCL [Suspect]
     Indication: B-CELL LYMPHOMA
  5. VINCRISTINE [Suspect]
     Indication: B-CELL LYMPHOMA
  6. PREDNISONE [Suspect]
     Indication: B-CELL LYMPHOMA

REACTIONS (9)
  - ACUTE PROMYELOCYTIC LEUKAEMIA [None]
  - ANAEMIA [None]
  - BETA 2 MICROGLOBULIN INCREASED [None]
  - DYSPLASIA [None]
  - FIBRIN D DIMER INCREASED [None]
  - GRANULOCYTOSIS [None]
  - LEUKOPENIA [None]
  - PROMYELOCYTE COUNT INCREASED [None]
  - THROMBOCYTOPENIA [None]
